FAERS Safety Report 20182046 (Version 2)
Quarter: 2021Q4

REPORT INFORMATION
  Report Type: Spontaneous
  Country: US (occurrence: US)
  Receive Date: 20211214
  Receipt Date: 20211216
  Transmission Date: 20220304
  Serious: No
  Sender: FDA-Public Use
  Company Number: US-SANOFI-00881865

PATIENT
  Age: 28 Year
  Sex: Female
  Weight: 175 kg

DRUGS (2)
  1. DUPIXENT [Suspect]
     Active Substance: DUPILUMAB
     Indication: Asthma
     Dosage: UNK
  2. DUPIXENT [Suspect]
     Active Substance: DUPILUMAB
     Indication: Nasal polyps

REACTIONS (5)
  - Weight increased [Unknown]
  - Body mass index increased [Unknown]
  - Therapeutic response shortened [Unknown]
  - Ill-defined disorder [Unknown]
  - Product use in unapproved indication [Unknown]
